FAERS Safety Report 19816267 (Version 3)
Quarter: 2022Q1

REPORT INFORMATION
  Report Type: Report from Study
  Country: US (occurrence: US)
  Receive Date: 20210910
  Receipt Date: 20220121
  Transmission Date: 20220423
  Serious: No
  Sender: FDA-Public Use
  Company Number: US-NOVARTISTESTPH-NVSC2021US205427

PATIENT
  Age: 67 Year
  Sex: Female

DRUGS (1)
  1. COSENTYX [Suspect]
     Active Substance: SECUKINUMAB
     Indication: Product used for unknown indication
     Dosage: UNK
     Route: 058

REACTIONS (6)
  - Hypersensitivity [Unknown]
  - Flushing [Unknown]
  - Chest discomfort [Unknown]
  - Hyperhidrosis [Unknown]
  - Paraesthesia oral [Unknown]
  - Feeling hot [Unknown]

NARRATIVE: CASE EVENT DATE: 20210801
